FAERS Safety Report 8325633-1 (Version None)
Quarter: 2012Q2

REPORT INFORMATION
  Report Type: 
  Country: None (occurrence: None)
  Receive Date: 20120501
  Receipt Date: 20120425
  Transmission Date: 20120825
  Serious: Yes (Hospitalization, Other)
  Sender: FDA-Public Use
  Company Number: GB-GENZYME-CLOF-1001902

PATIENT
  Sex: Male
  Weight: 68 kg

DRUGS (2)
  1. EVOLTRA [Suspect]
     Dosage: 35 MG, QD
     Route: 042
     Dates: start: 20070820, end: 20070824
  2. EVOLTRA [Suspect]
     Indication: ACUTE MYELOID LEUKAEMIA
     Dosage: 35 MG, QD
     Route: 042
     Dates: start: 20070716, end: 20070720

REACTIONS (4)
  - SWOLLEN TONGUE [None]
  - PERIORBITAL HAEMATOMA [None]
  - HAEMOGLOBIN DECREASED [None]
  - PLATELET COUNT DECREASED [None]
